FAERS Safety Report 4963840-6 (Version None)
Quarter: 2006Q1

REPORT INFORMATION
  Report Type: 
  Country: None (occurrence: None)
  Receive Date: 20060330
  Receipt Date: 20060315
  Transmission Date: 20060701
  Serious: Yes (Other)
  Sender: FDA-Public Use
  Company Number: GB200603001996

PATIENT
  Age: 80 Year
  Sex: Female

DRUGS (7)
  1. FORTEO [Suspect]
     Dosage: 20 UG, DAILY (1/D), SUBCUTANEOUS
     Route: 058
     Dates: start: 20060221
  2. FORTEO PEN (FORTEO PEN) [Concomitant]
  3. ATENOLOL [Concomitant]
  4. ANGITIL - SLOW RELEASE (DILTIAZEM HYDROCHLORIDE) [Concomitant]
  5. ISOSORBIDE (ISOSORBIDE) [Concomitant]
  6. PANTOPRAZOLE SODIUM [Concomitant]
  7. INSULIN (INSULIN) [Concomitant]

REACTIONS (2)
  - ANGINA PECTORIS [None]
  - MYOCARDIAL INFARCTION [None]
